FAERS Safety Report 12758842 (Version 1)
Quarter: 2016Q3

REPORT INFORMATION
  Report Type: Report from Study
  Country: IL (occurrence: IL)
  Receive Date: 20160919
  Receipt Date: 20160919
  Transmission Date: 20161109
  Serious: Yes (Hospitalization)
  Sender: FDA-Public Use
  Company Number: IL-NOVOPROD-509246

PATIENT
  Age: 73 Year
  Sex: Female

DRUGS (1)
  1. VICTOZA [Suspect]
     Active Substance: LIRAGLUTIDE
     Indication: PRODUCT USED FOR UNKNOWN INDICATION
     Dosage: 1.20 MG, QD
     Route: 058
     Dates: start: 20160809, end: 20160830

REACTIONS (3)
  - Hypoglycaemia [Unknown]
  - Hypotension [Unknown]
  - Diarrhoea [Unknown]
